FAERS Safety Report 25140225 (Version 1)
Quarter: 2025Q1

REPORT INFORMATION
  Report Type: Spontaneous
  Country: US (occurrence: US)
  Receive Date: 20250331
  Receipt Date: 20250331
  Transmission Date: 20250409
  Serious: No
  Sender: ROCHE
  Company Number: US-ROCHE-10000241694

PATIENT
  Sex: Female

DRUGS (4)
  1. RITUXIMAB [Suspect]
     Active Substance: RITUXIMAB
     Indication: Heparin-induced thrombocytopenia
     Route: 065
  2. DANAPAROID [Concomitant]
     Active Substance: DANAPAROID
  3. DABIGATRAN [Concomitant]
     Active Substance: DABIGATRAN
  4. ASPIRIN [Concomitant]
     Active Substance: ASPIRIN

REACTIONS (2)
  - Infection [Unknown]
  - Drug ineffective [Unknown]
